FAERS Safety Report 6080563-3 (Version None)
Quarter: 2009Q1

REPORT INFORMATION
  Report Type: 
  Country: None (occurrence: None)
  Receive Date: 20090217
  Receipt Date: 20090217
  Transmission Date: 20090719
  Serious: Yes (Death)
  Sender: FDA-Public Use
  Company Number: B0556393A

PATIENT
  Age: 76 Year
  Sex: Male
  Weight: 80 kg

DRUGS (2)
  1. ROSIGLITAZONE [Suspect]
     Route: 048
     Dates: start: 20011112, end: 20031121
  2. GLICLAZIDE [Concomitant]
     Dosage: 240MG PER DAY
     Route: 048
     Dates: start: 20010405

REACTIONS (1)
  - DEATH [None]
